FAERS Safety Report 12190524 (Version 1)
Quarter: 2016Q1

REPORT INFORMATION
  Report Type: Spontaneous
  Country: US (occurrence: None)
  Receive Date: 20160317
  Receipt Date: 20160317
  Transmission Date: 20160526
  Serious: Yes (Hospitalization)
  Sender: FDA-Public Use
  Company Number: None

PATIENT
  Age: 36 Year
  Sex: Male
  Weight: 123.8 kg

DRUGS (1)
  1. MELOXICAM. [Suspect]
     Active Substance: MELOXICAM
     Indication: PAIN
     Dosage: 1 TAB EVERY DAY PO
     Route: 048
     Dates: start: 20150213, end: 20150706

REACTIONS (1)
  - Renal tubular necrosis [None]

NARRATIVE: CASE EVENT DATE: 20150706
